FAERS Safety Report 19757599 (Version 1)
Quarter: 2021Q3

REPORT INFORMATION
  Report Type: Spontaneous
  Country: JP (occurrence: JP)
  Receive Date: 20210827
  Receipt Date: 20210827
  Transmission Date: 20211014
  Serious: Yes (Hospitalization, Other)
  Sender: FDA-Public Use
  Company Number: JP-RISING PHARMA HOLDINGS, INC.-2021RIS000068

PATIENT
  Age: 39 Year
  Sex: Male

DRUGS (4)
  1. PREGABALIN. [Suspect]
     Active Substance: PREGABALIN
     Dosage: 600 MILLIGRAM, QD
     Route: 065
  2. CELECOXIB. [Concomitant]
     Active Substance: CELECOXIB
     Indication: NEURALGIA
     Dosage: 200 MILLIGRAM, QD
     Route: 065
  3. PREGABALIN. [Suspect]
     Active Substance: PREGABALIN
     Dosage: 300 MILLIGRAM, QD
     Route: 065
  4. PREGABALIN. [Suspect]
     Active Substance: PREGABALIN
     Indication: NEURALGIA
     Dosage: 600 MILLIGRAM, QD
     Route: 065

REACTIONS (8)
  - Respiratory distress [Recovering/Resolving]
  - Drug withdrawal syndrome [Recovered/Resolved]
  - Restlessness [Recovering/Resolving]
  - Decreased appetite [Unknown]
  - Insomnia [Recovering/Resolving]
  - Anxiety [Recovered/Resolved]
  - Dyspnoea [Unknown]
  - Palpitations [Recovering/Resolving]
